FAERS Safety Report 19499179 (Version 1)
Quarter: 2021Q3

REPORT INFORMATION
  Report Type: Spontaneous
  Country: PG (occurrence: PG)
  Receive Date: 20210707
  Receipt Date: 20210707
  Transmission Date: 20211014
  Serious: Yes (Other)
  Sender: FDA-Public Use
  Company Number: PG-JNJFOC-20210700631

PATIENT
  Age: 20 Year
  Sex: Female
  Weight: 58 kg

DRUGS (9)
  1. LINEZOLIDE [Suspect]
     Active Substance: LINEZOLID
     Dosage: 7DAYS/WEEK
     Route: 048
     Dates: start: 20210609, end: 20210628
  2. LINEZOLIDE [Suspect]
     Active Substance: LINEZOLID
     Dosage: 7DAYS/WEEK
     Route: 048
     Dates: start: 20200806, end: 20210609
  3. CLOFAZIMINE [Suspect]
     Active Substance: CLOFAZIMINE
     Indication: EXTRAPULMONARY TUBERCULOSIS
     Dosage: 7DAYS/WEEK
     Route: 048
     Dates: start: 20200603
  4. BEDAQUILINE [Suspect]
     Active Substance: BEDAQUILINE
     Dosage: 200 MG 3DAYS/WEEK
     Route: 048
     Dates: start: 20200617, end: 20210113
  5. BEDAQUILINE [Suspect]
     Active Substance: BEDAQUILINE
     Indication: EXTRAPULMONARY TUBERCULOSIS
     Dosage: 7DAYS/WEEK
     Route: 048
     Dates: start: 20200603, end: 20200617
  6. LINEZOLIDE [Suspect]
     Active Substance: LINEZOLID
     Indication: EXTRAPULMONARY TUBERCULOSIS
     Dosage: 7DAYS/WEEK
     Route: 048
     Dates: start: 20200603, end: 20200806
  7. IRON [Concomitant]
     Active Substance: IRON
     Indication: ANAEMIA
     Dosage: 7DAYS/WEEK
     Route: 048
     Dates: start: 20210609
  8. LEVOFLOXACIN. [Suspect]
     Active Substance: LEVOFLOXACIN
     Indication: EXTRAPULMONARY TUBERCULOSIS
     Dosage: 7DAYS/WEEK
     Route: 048
     Dates: start: 20200603
  9. CYCLOSERINE. [Suspect]
     Active Substance: CYCLOSERINE
     Indication: EXTRAPULMONARY TUBERCULOSIS
     Route: 048
     Dates: start: 20210628

REACTIONS (3)
  - Neuropathy peripheral [Unknown]
  - Off label use [Unknown]
  - Intentional product use issue [Unknown]

NARRATIVE: CASE EVENT DATE: 20200603
